FAERS Safety Report 21419369 (Version 2)
Quarter: 2022Q4

REPORT INFORMATION
  Report Type: Report from Study
  Country: US (occurrence: US)
  Receive Date: 20221006
  Receipt Date: 20221009
  Transmission Date: 20230113
  Serious: Yes (Other)
  Sender: FDA-Public Use
  Company Number: US-ABBVIE-22K-163-4358128-00

PATIENT
  Sex: Female

DRUGS (6)
  1. HUMIRA [Suspect]
     Active Substance: ADALIMUMAB
     Indication: Psoriatic arthropathy
     Route: 058
     Dates: start: 20070102
  2. HUMIRA [Suspect]
     Active Substance: ADALIMUMAB
     Indication: Psoriasis
     Dosage: CITRATE FREE
     Route: 058
  3. HUMIRA [Suspect]
     Active Substance: ADALIMUMAB
     Dosage: CITRATE FREE
     Route: 058
     Dates: start: 2008
  4. HUMIRA [Suspect]
     Active Substance: ADALIMUMAB
     Dosage: CITRATE FREE
     Route: 058
     Dates: start: 20070120
  5. PFIZER-BIONTECH COVID-19 VACCINE [Concomitant]
     Active Substance: TOZINAMERAN
     Indication: COVID-19 immunisation
     Dosage: TIME INTERVAL: 1 TOTAL: FIRST DOSE
     Route: 030
     Dates: start: 20210428, end: 20210428
  6. PFIZER-BIONTECH COVID-19 VACCINE [Concomitant]
     Active Substance: TOZINAMERAN
     Indication: COVID-19 immunisation
     Dosage: TIME INTERVAL: 1 TOTAL: SECOND DOSE
     Route: 030
     Dates: start: 20210519, end: 20210519

REACTIONS (20)
  - Knee arthroplasty [Recovered/Resolved]
  - Synovial cyst [Recovered/Resolved]
  - Trigger finger [Not Recovered/Not Resolved]
  - Bursitis [Not Recovered/Not Resolved]
  - Adverse drug reaction [Not Recovered/Not Resolved]
  - Meniscus injury [Not Recovered/Not Resolved]
  - Synovial rupture [Not Recovered/Not Resolved]
  - Skin irritation [Not Recovered/Not Resolved]
  - Knee arthroplasty [Recovering/Resolving]
  - Tendon disorder [Not Recovered/Not Resolved]
  - Asthma [Not Recovered/Not Resolved]
  - Myositis [Not Recovered/Not Resolved]
  - COVID-19 [Recovered/Resolved]
  - Blood disorder [Not Recovered/Not Resolved]
  - Psoriasis [Recovered/Resolved]
  - Injection site pain [Not Recovered/Not Resolved]
  - Pain [Not Recovered/Not Resolved]
  - Arthralgia [Not Recovered/Not Resolved]
  - Sinusitis [Unknown]
  - Myalgia [Unknown]

NARRATIVE: CASE EVENT DATE: 20160101
